FAERS Safety Report 20728693 (Version 1)
Quarter: 2022Q2

REPORT INFORMATION
  Report Type: Spontaneous
  Country: US (occurrence: US)
  Receive Date: 20220420
  Receipt Date: 20220420
  Transmission Date: 20220721
  Serious: Yes (Other)
  Sender: FDA-Public Use
  Company Number: US-drreddys-SPO/USA/22/0148967

PATIENT
  Age: 26 Year
  Sex: Female

DRUGS (1)
  1. ACCUTANE [Suspect]
     Active Substance: ISOTRETINOIN
     Indication: Product used for unknown indication
     Dosage: RMA ISSUE DATE: 20 JANUARY 2022 03:03:15 PM, 18 FEBRUARY 2022 02:12:42 PM AND 17 MARCH 2022 06:04:13

REACTIONS (1)
  - Depression [Unknown]
